FAERS Safety Report 4467709-5 (Version None)
Quarter: 2004Q4

REPORT INFORMATION
  Report Type: 
  Country: None (occurrence: None)
  Receive Date: 20041007
  Receipt Date: 20040928
  Transmission Date: 20050328
  Serious: Yes (Hospitalization)
  Sender: FDA-Public Use
  Company Number: FR-JNJFOC-20040808349

PATIENT
  Age: 32 Year
  Sex: Female
  Weight: 45 kg

DRUGS (16)
  1. REMICADE [Suspect]
     Route: 042
  2. REMICADE [Suspect]
     Route: 042
  3. REMICADE [Suspect]
     Route: 042
  4. REMICADE [Suspect]
     Route: 042
  5. REMICADE [Suspect]
     Route: 042
  6. REMICADE [Suspect]
     Route: 042
  7. REMICADE [Suspect]
     Route: 042
  8. REMICADE [Suspect]
     Route: 042
  9. REMICADE [Suspect]
     Indication: ANKYLOSING SPONDYLITIS
     Route: 042
  10. XANAX [Concomitant]
     Route: 049
  11. MOPRAL [Concomitant]
     Route: 049
  12. SEROPRAM [Concomitant]
     Indication: DEPRESSION
     Dosage: 2 TABLETS DAILY
     Route: 049
  13. SKENAN [Concomitant]
     Route: 049
  14. FELDENE [Concomitant]
     Route: 049
  15. MORPHINE SULFATE [Concomitant]
     Indication: ANALGESIC THERAPY
     Dosage: 4 TABLETS DAILY
     Route: 049
  16. STILNOX [Concomitant]
     Route: 049

REACTIONS (5)
  - BLOOD AMYLASE INCREASED [None]
  - MIGRAINE [None]
  - NAUSEA [None]
  - PAIN [None]
  - VOMITING [None]
